FAERS Safety Report 10284461 (Version 1)
Quarter: 2014Q3

REPORT INFORMATION
  Report Type: Spontaneous
  Country: US (occurrence: US)
  Receive Date: 20140708
  Receipt Date: 20140708
  Transmission Date: 20150326
  Serious: Yes (Hospitalization)
  Sender: FDA-Public Use
  Company Number: US-MYLANLABS-2014S1015511

PATIENT
  Age: 57 Year
  Sex: Male

DRUGS (2)
  1. WARFARIN [Suspect]
     Active Substance: WARFARIN
     Indication: PULMONARY EMBOLISM
     Route: 065
  2. LENALIDOMIDE [Concomitant]
     Active Substance: LENALIDOMIDE
     Route: 065

REACTIONS (6)
  - Gingival bleeding [Unknown]
  - Toxicity to various agents [Unknown]
  - Epistaxis [Unknown]
  - Ecchymosis [Unknown]
  - Haematoma [Unknown]
  - International normalised ratio increased [Unknown]
